FAERS Safety Report 21700268 (Version 1)
Quarter: 2022Q4

REPORT INFORMATION
  Report Type: Spontaneous
  Country: US (occurrence: None)
  Receive Date: 20221207
  Receipt Date: 20221207
  Transmission Date: 20230112
  Serious: Yes (Hospitalization)
  Sender: FDA-Public Use
  Company Number: None

PATIENT
  Age: 66 Year
  Sex: Male
  Weight: 91 kg

DRUGS (2)
  1. ACYCLOVIR [Suspect]
     Active Substance: ACYCLOVIR
     Indication: Hypertension
     Route: 048
     Dates: start: 20221027, end: 20221102
  2. LISINOPRIL [Suspect]
     Active Substance: LISINOPRIL
     Indication: Herpes simplex
     Dosage: FREQUENCY : DAILY;?
     Route: 048
     Dates: start: 20220923, end: 20221102

REACTIONS (1)
  - Angioedema [None]

NARRATIVE: CASE EVENT DATE: 20221102
